FAERS Safety Report 5756945-3 (Version None)
Quarter: 2008Q2

REPORT INFORMATION
  Report Type: 
  Country: None (occurrence: None)
  Receive Date: 20080529
  Receipt Date: 20080520
  Transmission Date: 20081010
  Serious: Yes (Life-Threatening, Hospitalization)
  Sender: FDA-Public Use
  Company Number: HECT-1000011

PATIENT
  Sex: Male

DRUGS (13)
  1. HECTOROL [Suspect]
     Indication: PROSTATE CANCER METASTATIC
     Dosage: 10 UG, QD,ORAL
     Route: 048
  2. DOCETAXEL [Concomitant]
  3. DEXAMETHASONE TAB [Concomitant]
  4. ANZEMET [Concomitant]
  5. ATIVAN [Concomitant]
  6. SEPTRA DS [Concomitant]
  7. ZOMETA (SOLEDRONIC ACID) [Concomitant]
  8. BENADRYL [Concomitant]
  9. LOTENSIN [Concomitant]
  10. PROTONIX [Concomitant]
  11. AMBIEN [Concomitant]
  12. MILK OF MAGNESIA TAB [Concomitant]
  13. DIAZIDE (HYDROCHLOROTHIAZIDE, TRIAMTERENE) [Concomitant]

REACTIONS (1)
  - HYPERCALCAEMIA [None]
